FAERS Safety Report 7320214-0 (Version None)
Quarter: 2011Q1

REPORT INFORMATION
  Report Type: 
  Country: None (occurrence: None)
  Receive Date: 20110228
  Receipt Date: 20110216
  Transmission Date: 20110831
  Serious: Yes (Other)
  Sender: FDA-Public Use
  Company Number: PHHY2009DE34085

PATIENT
  Sex: Female
  Weight: 65 kg

DRUGS (4)
  1. NATRILIX [Concomitant]
     Dosage: UNK
     Dates: start: 19980601
  2. UDRAMIL [Concomitant]
     Dosage: UNK
     Dates: start: 19980601
  3. CGS 20267 [Suspect]
     Indication: BREAST CANCER
     Dosage: 2.5 MG DAILY
     Route: 048
     Dates: start: 20080819
  4. RADIOTHERAPY [Concomitant]
     Dosage: UNK
     Dates: start: 20081001, end: 20081215

REACTIONS (6)
  - NEUROPATHY PERIPHERAL [None]
  - DEPRESSION [None]
  - GENERAL PHYSICAL HEALTH DETERIORATION [None]
  - MUCOSAL DRYNESS [None]
  - SLEEP DISORDER [None]
  - HOT FLUSH [None]
